FAERS Safety Report 4972076-4 (Version None)
Quarter: 2006Q2

REPORT INFORMATION
  Report Type: 
  Country: None (occurrence: None)
  Receive Date: 20060412
  Receipt Date: 20060412
  Transmission Date: 20061013
  Serious: Yes (Other)
  Sender: FDA-Public Use
  Company Number: None

PATIENT
  Age: 55 Year
  Sex: Female

DRUGS (1)
  1. LOPRESSOR [Suspect]
     Indication: MENTAL STATUS CHANGES
     Dosage: 100MG  ONCE BID  PO
     Route: 048
     Dates: start: 19960101

REACTIONS (3)
  - ANXIETY [None]
  - EMOTIONAL DISORDER [None]
  - ILL-DEFINED DISORDER [None]
